FAERS Safety Report 5777221-9 (Version None)
Quarter: 2008Q2

REPORT INFORMATION
  Report Type: 
  Country: None (occurrence: None)
  Receive Date: 20080601
  Receipt Date: 20080115
  Transmission Date: 20081010
  Serious: No
  Sender: FDA-Public Use
  Company Number: US200801003214

PATIENT
  Age: 22 Year
  Sex: Female
  Weight: 74.8 kg

DRUGS (3)
  1. BYETTA [Suspect]
     Indication: POLYCYSTIC OVARIES
     Dosage: 5 UG, 2/D, SUBCUTANEOUS
     Route: 058
     Dates: start: 20050101
  2. METFORMIN HCL [Concomitant]
  3. WELLBUTRIN [Concomitant]

REACTIONS (4)
  - ASTHENIA [None]
  - DEPRESSION [None]
  - MOOD SWINGS [None]
  - WEIGHT DECREASED [None]
